FAERS Safety Report 13974441 (Version 1)
Quarter: 2017Q3

REPORT INFORMATION
  Report Type: Spontaneous
  Country: IN (occurrence: IN)
  Receive Date: 20170915
  Receipt Date: 20170915
  Transmission Date: 20171128
  Serious: Yes (Death)
  Sender: FDA-Public Use
  Company Number: IN-JNJFOC-20170912672

PATIENT
  Age: 95 Year
  Sex: Female

DRUGS (1)
  1. IMBRUVICA [Suspect]
     Active Substance: IBRUTINIB
     Indication: CHRONIC LYMPHOCYTIC LEUKAEMIA
     Dosage: TOTAL DAILY DOSE: 420 MG
     Route: 048

REACTIONS (4)
  - Off label use [Unknown]
  - Death [Fatal]
  - Incorrect dose administered [Unknown]
  - Inappropriate schedule of drug administration [Unknown]
